FAERS Safety Report 4679666-7 (Version None)
Quarter: 2005Q2

REPORT INFORMATION
  Report Type: 
  Country: None (occurrence: None)
  Receive Date: 20050602
  Receipt Date: 20050523
  Transmission Date: 20051028
  Serious: Yes (Hospitalization)
  Sender: FDA-Public Use
  Company Number: GB-BRISTOL-MYERS SQUIBB COMPANY-12979217

PATIENT
  Age: 72 Year
  Sex: Male

DRUGS (4)
  1. APROVEL TABS 300 MG [Suspect]
     Route: 048
     Dates: start: 20050501
  2. ATENOLOL [Concomitant]
  3. ATORVASTATIN [Concomitant]
  4. ASPIRIN [Concomitant]

REACTIONS (1)
  - HYPONATRAEMIA [None]
